FAERS Safety Report 5399825-8 (Version None)
Quarter: 2007Q3

REPORT INFORMATION
  Report Type: 
  Country: None (occurrence: None)
  Receive Date: 20070724
  Receipt Date: 20070710
  Transmission Date: 20080115
  Serious: Yes (Life-Threatening, Other)
  Sender: FDA-Public Use
  Company Number: 02100-EUR-07-0075

PATIENT
  Age: 51 Year
  Sex: Male

DRUGS (1)
  1. CILOSTAZOL [Suspect]
     Indication: PERIPHERAL ARTERIAL OCCLUSIVE DISEASE
     Dosage: 200 MG ORAL
     Route: 048
     Dates: start: 20070330, end: 20070402

REACTIONS (3)
  - ANGINA PECTORIS [None]
  - ARRHYTHMIA [None]
  - CARDIAC DISORDER [None]
